FAERS Safety Report 6802521-0 (Version None)
Quarter: 2010Q2

REPORT INFORMATION
  Report Type: 
  Country: None (occurrence: None)
  Receive Date: 20100628
  Receipt Date: 20100616
  Transmission Date: 20101027
  Serious: No
  Sender: FDA-Public Use
  Company Number: US-JNJFOC-20100605854

PATIENT

DRUGS (1)
  1. DURAGESIC RESERVOIR [Suspect]
     Indication: DRUG USE FOR UNKNOWN INDICATION
     Dosage: NDC NUMBER 50458-0034-05
     Route: 062

REACTIONS (2)
  - MALAISE [None]
  - WRONG TECHNIQUE IN DRUG USAGE PROCESS [None]
